FAERS Safety Report 11022203 (Version 2)
Quarter: 2015Q2

REPORT INFORMATION
  Report Type: Spontaneous
  Country: JP (occurrence: JP)
  Receive Date: 20150413
  Receipt Date: 20150616
  Transmission Date: 20150821
  Serious: Yes (Death, Other)
  Sender: FDA-Public Use
  Company Number: JP-AMGEN-JPNSP2015035031

PATIENT
  Age: 83 Year
  Sex: Female
  Weight: 24.9 kg

DRUGS (10)
  1. VECTIBIX [Suspect]
     Active Substance: PANITUMUMAB
     Indication: COLON CANCER
     Dosage: 200 MG, Q2WEEKS
     Route: 041
     Dates: start: 20140227, end: 20140313
  2. VECTIBIX [Suspect]
     Active Substance: PANITUMUMAB
     Dosage: 180 MG, Q2WEEKS
     Route: 041
     Dates: start: 20140430, end: 20140613
  3. TETRACYCLINE HYDROCHLORIDE. [Concomitant]
     Active Substance: TETRACYCLINE HYDROCHLORIDE
     Dosage: UNK
     Route: 065
  4. VECTIBIX [Suspect]
     Active Substance: PANITUMUMAB
     Dosage: 167 MG, Q2WEEKS
     Route: 041
     Dates: start: 20140728, end: 20140728
  5. VECTIBIX [Suspect]
     Active Substance: PANITUMUMAB
     Indication: METASTASES TO LIVER
     Dosage: 190 MG, Q2WEEKS
     Route: 041
     Dates: start: 20140402, end: 20140402
  6. VECTIBIX [Suspect]
     Active Substance: PANITUMUMAB
     Dosage: 160 MG, Q2WEEKS
     Route: 041
     Dates: start: 20140813, end: 20140910
  7. VECTIBIX [Suspect]
     Active Substance: PANITUMUMAB
     Dosage: 155 MG, Q2WEEKS
     Route: 041
     Dates: start: 20140924, end: 20140924
  8. PREDONINE [Concomitant]
     Active Substance: PREDNISOLONE\PREDNISOLONE ACETATE\PREDNISOLONE SODIUM SUCCINATE
     Dosage: UNK
     Route: 065
  9. VECTIBIX [Suspect]
     Active Substance: PANITUMUMAB
     Dosage: 175 MG, Q2WEEKS
     Route: 041
     Dates: start: 20140702, end: 20140702
  10. VECTIBIX [Suspect]
     Active Substance: PANITUMUMAB
     Dosage: 150 MG, Q2WEEKS
     Route: 041
     Dates: start: 20141008

REACTIONS (2)
  - Stevens-Johnson syndrome [Recovering/Resolving]
  - Colon cancer [Fatal]

NARRATIVE: CASE EVENT DATE: 20140718
